FAERS Safety Report 7829744-6 (Version None)
Quarter: 2011Q4

REPORT INFORMATION
  Report Type: 
  Country: None (occurrence: None)
  Receive Date: 20111018
  Receipt Date: 20111004
  Transmission Date: 20120403
  Serious: Yes (Hospitalization)
  Sender: FDA-Public Use
  Company Number: 2011-4109

PATIENT
  Age: 6 Year
  Sex: Male
  Weight: 19.4 kg

DRUGS (7)
  1. INCRELEX [Suspect]
     Indication: PRIMARY INSULIN LIKE GROWTH FACTOR-1 DEFICIENCY
     Dosage: SEE IMAGE
     Dates: start: 20080114, end: 20080219
  2. INCRELEX [Suspect]
     Indication: PRIMARY INSULIN LIKE GROWTH FACTOR-1 DEFICIENCY
     Dosage: SEE IMAGE
     Dates: start: 20090318, end: 20090719
  3. INCRELEX [Suspect]
     Indication: PRIMARY INSULIN LIKE GROWTH FACTOR-1 DEFICIENCY
     Dosage: SEE IMAGE
     Dates: start: 20110131, end: 20110807
  4. INCRELEX [Suspect]
     Indication: PRIMARY INSULIN LIKE GROWTH FACTOR-1 DEFICIENCY
     Dosage: SEE IMAGE
     Dates: start: 20080220, end: 20081210
  5. INCRELEX [Suspect]
     Indication: PRIMARY INSULIN LIKE GROWTH FACTOR-1 DEFICIENCY
     Dosage: SEE IMAGE
     Dates: start: 20090720, end: 20110130
  6. INCRELEX [Suspect]
     Indication: PRIMARY INSULIN LIKE GROWTH FACTOR-1 DEFICIENCY
     Dosage: SEE IMAGE
     Dates: start: 20110808, end: 20111004
  7. INCRELEX [Suspect]
     Indication: PRIMARY INSULIN LIKE GROWTH FACTOR-1 DEFICIENCY
     Dosage: SEE IMAGE
     Dates: start: 20081211, end: 20090317

REACTIONS (2)
  - DRUG DOSE OMISSION [None]
  - PYELONEPHRITIS [None]
